FAERS Safety Report 9707746 (Version 1)
Quarter: 2013Q4

REPORT INFORMATION
  Report Type: Spontaneous
  Country: RO (occurrence: RO)
  Receive Date: 20131125
  Receipt Date: 20131125
  Transmission Date: 20140711
  Serious: Yes (Death)
  Sender: FDA-Public Use
  Company Number: RO-PFIZER INC-2013331317

PATIENT
  Age: 36 Year
  Sex: Female
  Weight: 41.2 kg

DRUGS (2)
  1. OXALIPLATIN [Suspect]
     Indication: ADENOCARCINOMA
     Dosage: 150 MG/M2 (DILUTED IN A 5% GLUCOSE SOLUTION) INTRAVENOUSLY OVER 120 MIN ON DAY 1, FOLLOWED BY 1-WEEK
     Route: 042
  2. CAPECITABINE [Suspect]
     Indication: ADENOCARCINOMA
     Dosage: 1250 MG/M2 TWICE DAILY FROM DAYS 1 TO 14, FOLLOWED BY 1-WEEK DRUG HOLIDAY, IN A 21-DAY CYCLE.
     Route: 048

REACTIONS (4)
  - Cardiotoxicity [Fatal]
  - Hepatic steatosis [Fatal]
  - Pancreatitis chronic [Fatal]
  - Enteritis [Fatal]
